FAERS Safety Report 5887950-4 (Version None)
Quarter: 2008Q3

REPORT INFORMATION
  Report Type: 
  Country: None (occurrence: None)
  Receive Date: 20080918
  Receipt Date: 20080912
  Transmission Date: 20090109
  Serious: Yes (Other)
  Sender: FDA-Public Use
  Company Number: B0360921A

PATIENT
  Age: 33 Year
  Sex: Male

DRUGS (5)
  1. PAROXETINE HYDROCHLORIDE [Suspect]
     Route: 065
     Dates: start: 19961223
  2. BENDROFLUMETHIAZIDE [Concomitant]
  3. PERINDOPRIL ERBUMINE [Concomitant]
  4. PRAVASTATIN [Concomitant]
  5. UNSPECIFIED DRUG [Concomitant]

REACTIONS (7)
  - AGGRESSION [None]
  - DRUG WITHDRAWAL SYNDROME [None]
  - IRRITABILITY [None]
  - MUSCLE TWITCHING [None]
  - PARANOIA [None]
  - PRURITUS [None]
  - SUICIDAL IDEATION [None]
